FAERS Safety Report 20850368 (Version 5)
Quarter: 2022Q3

REPORT INFORMATION
  Report Type: Report from Study
  Country: IT (occurrence: IT)
  Receive Date: 20220519
  Receipt Date: 20220722
  Transmission Date: 20221027
  Serious: Yes (Hospitalization)
  Sender: FDA-Public Use
  Company Number: IT-AMGEN-ITACT2022085300

PATIENT
  Age: 79 Year
  Sex: Male

DRUGS (18)
  1. CARFILZOMIB [Suspect]
     Active Substance: CARFILZOMIB
     Indication: Plasma cell myeloma
     Dosage: 20 MILLIGRAM/SQ. METER, PER CHEMO REGIM
     Route: 065
     Dates: start: 20211117
  2. CARFILZOMIB [Suspect]
     Active Substance: CARFILZOMIB
     Dosage: 56 MILLIGRAM/SQ. METER, PER CHEMO REGIM
     Route: 065
  3. LENALIDOMIDE [Suspect]
     Active Substance: LENALIDOMIDE
     Indication: Plasma cell myeloma
     Dosage: 25 MILLIGRAM, PER CHEMO REGIM
     Route: 065
     Dates: start: 20211117
  4. LENALIDOMIDE [Suspect]
     Active Substance: LENALIDOMIDE
     Dosage: UNK UNK, PER CHEMO REGIM
     Route: 065
     Dates: start: 20220525
  5. DEXAMETHASONE [Suspect]
     Active Substance: DEXAMETHASONE
     Indication: Plasma cell myeloma
     Dosage: 20 MILLIGRAM, PER CHEMO REGIM
     Route: 065
     Dates: start: 20211117
  6. DEXAMETHASONE [Suspect]
     Active Substance: DEXAMETHASONE
     Dosage: UNK UNK, PER CHEMO REGIM
     Route: 065
     Dates: start: 20220525
  7. FILGRASTIM [Concomitant]
     Active Substance: FILGRASTIM
     Dosage: UNK
     Dates: start: 20220325, end: 20220326
  8. ASPIRIN [Concomitant]
     Active Substance: ASPIRIN
     Indication: Prophylaxis
     Dosage: UNK
     Dates: start: 20211116
  9. ALLOPURINOL [Concomitant]
     Active Substance: ALLOPURINOL
     Dosage: UNK
     Dates: start: 20210201
  10. AMLODIPINE BESYLATE\OLMESARTAN MEDOXOMIL [Concomitant]
     Active Substance: AMLODIPINE BESYLATE\OLMESARTAN MEDOXOMIL
     Dosage: UNK
     Dates: start: 20210603
  11. Terazosina [Concomitant]
     Dosage: UNK
     Dates: start: 20190910
  12. PANTOPRAZOLE SODIUM [Concomitant]
     Active Substance: PANTOPRAZOLE SODIUM
     Dosage: UNK
     Dates: start: 20210603
  13. BISOPROLOL [Concomitant]
     Active Substance: BISOPROLOL
     Dosage: UNK
     Dates: start: 20190910, end: 20211206
  14. ACYCLOVIR [Concomitant]
     Active Substance: ACYCLOVIR
     Indication: Prophylaxis
     Dosage: UNK
     Dates: start: 20211116
  15. DELORAZEPAM [Concomitant]
     Active Substance: DELORAZEPAM
     Dosage: UNK
     Dates: start: 20220204
  16. LASIX [Concomitant]
     Active Substance: FUROSEMIDE
     Dosage: UNK
     Dates: start: 20211206
  17. Luvion [Concomitant]
     Dosage: UNK
     Dates: start: 20220426
  18. CALCIUM CARBONATE [Concomitant]
     Active Substance: CALCIUM CARBONATE
     Indication: Prophylaxis
     Dosage: UNK
     Dates: start: 20211207

REACTIONS (1)
  - Hypertensive heart disease [Recovered/Resolved]

NARRATIVE: CASE EVENT DATE: 20220505
